FAERS Safety Report 6116336-2 (Version None)
Quarter: 2009Q1

REPORT INFORMATION
  Report Type: 
  Country: None (occurrence: None)
  Receive Date: 20090314
  Receipt Date: 20081209
  Transmission Date: 20090719
  Serious: No
  Sender: FDA-Public Use
  Company Number: US-ABBOTT-08P-163-0492051-00

PATIENT
  Sex: Female
  Weight: 61.29 kg

DRUGS (3)
  1. HUMIRA [Suspect]
     Indication: CROHN'S DISEASE
     Route: 058
     Dates: start: 20081021, end: 20081021
  2. HUMIRA [Suspect]
     Route: 058
     Dates: start: 20081104, end: 20081104
  3. HUMIRA [Suspect]
     Route: 058
     Dates: start: 20081118

REACTIONS (3)
  - CONTUSION [None]
  - INJECTION SITE HAEMATOMA [None]
  - MIGRAINE [None]
